FAERS Safety Report 26155647 (Version 1)
Quarter: 2025Q4

REPORT INFORMATION
  Report Type: Spontaneous
  Country: JP (occurrence: JP)
  Receive Date: 20251215
  Receipt Date: 20251215
  Transmission Date: 20260118
  Serious: Yes (Death, Hospitalization, Other)
  Sender: ALKEM
  Company Number: None

PATIENT
  Age: 53 Year
  Sex: Male

DRUGS (17)
  1. TACROLIMUS [Suspect]
     Active Substance: TACROLIMUS
     Indication: Prophylaxis against graft versus host disease
     Dosage: UNK
     Route: 065
  2. METHYLPREDNISOLONE [Suspect]
     Active Substance: METHYLPREDNISOLONE
     Indication: Pre-engraftment immune reaction
     Dosage: UNK (HIGH DOSE)
     Route: 065
  3. METHYLPREDNISOLONE [Suspect]
     Active Substance: METHYLPREDNISOLONE
     Dosage: 250 MILLIGRAM, QD
     Route: 065
  4. CYCLOSPORINE [Suspect]
     Active Substance: CYCLOSPORINE
     Indication: Immunosuppressant drug therapy
     Dosage: UNK
     Route: 065
  5. CYCLOSPORINE [Suspect]
     Active Substance: CYCLOSPORINE
     Indication: Graft versus host disease in skin
  6. FOSCARNET [Suspect]
     Active Substance: FOSCARNET
     Indication: Human herpesvirus 6 encephalitis
     Dosage: UNK
     Route: 065
  7. FOSCARNET [Suspect]
     Active Substance: FOSCARNET
     Indication: Epstein-Barr virus infection
  8. FOSCARNET [Suspect]
     Active Substance: FOSCARNET
     Indication: Herpes zoster
  9. PREDNISOLONE [Suspect]
     Active Substance: PREDNISOLONE
     Indication: Pre-engraftment immune reaction
     Dosage: UNK (TAPPERED DOSE)
     Route: 065
  10. PREDNISOLONE [Suspect]
     Active Substance: PREDNISOLONE
     Indication: Graft versus host disease
     Dosage: 8 MILLIGRAM, QD (DOSE REDUCED)
     Route: 065
  11. PREDNISOLONE [Suspect]
     Active Substance: PREDNISOLONE
     Indication: Pneumonia
     Dosage: 10 MILLIGRAM, QD (RECHALLENGE DOSE)
     Route: 065
  12. PREDNISOLONE [Suspect]
     Active Substance: PREDNISOLONE
     Indication: Chronic graft versus host disease in skin
     Dosage: 16 MILLIGRAM, QD
     Route: 065
  13. PREDNISOLONE [Suspect]
     Active Substance: PREDNISOLONE
     Dosage: 20 MILLIGRAM, QD
     Route: 065
  14. PREDNISOLONE [Suspect]
     Active Substance: PREDNISOLONE
     Dosage: 20 MILLIGRAM, QD (INCREASED DOSE)
     Route: 065
  15. PREDNISOLONE [Suspect]
     Active Substance: PREDNISOLONE
     Dosage: 45 MILLIGRAM, QD (1 MG/KG/DAY)
     Route: 065
  16. PREDNISOLONE [Suspect]
     Active Substance: PREDNISOLONE
     Dosage: 60 MILLIGRAM, QD (1 MG/KG/ DAY)
     Route: 065
  17. RITUXIMAB [Suspect]
     Active Substance: RITUXIMAB
     Indication: Post transplant lymphoproliferative disorder
     Dosage: UNK
     Route: 065

REACTIONS (13)
  - Drug ineffective [Fatal]
  - Hyponatraemia [Unknown]
  - Post transplant lymphoproliferative disorder [Unknown]
  - Epstein-Barr virus infection [Unknown]
  - Graft versus host disease in gastrointestinal tract [Unknown]
  - Graft versus host disease in liver [Unknown]
  - Graft versus host disease in lung [Recovering/Resolving]
  - Graft versus host disease in skin [Recovering/Resolving]
  - Human herpesvirus 6 encephalitis [Recovering/Resolving]
  - Pneumonia [Recovering/Resolving]
  - Septic shock [Recovered/Resolved]
  - Adenoviral haemorrhagic cystitis [Unknown]
  - Herpes zoster [Unknown]
